FAERS Safety Report 4649685-5 (Version None)
Quarter: 2005Q2

REPORT INFORMATION
  Report Type: 
  Country: None (occurrence: None)
  Receive Date: 20050502
  Receipt Date: 20050426
  Transmission Date: 20051028
  Serious: Yes (Hospitalization, Other)
  Sender: FDA-Public Use
  Company Number: 200513524US

PATIENT
  Age: 67 Year
  Sex: Female

DRUGS (19)
  1. LANTUS [Suspect]
     Indication: DIABETES MELLITUS NON-INSULIN-DEPENDENT
     Dosage: DOSE UNIT: UNITS
     Dates: start: 20040801
  2. OPTICLIK (INSULIN INJECTION PEN) [Suspect]
     Dosage: DOSE: UNK
  3. PRANDIN [Concomitant]
  4. LOPRESSOR [Concomitant]
     Dosage: DOSE: UNK
  5. TAMBOCOR [Concomitant]
     Dosage: DOSE: UNK
  6. ZETIA                                   /USA/ [Concomitant]
     Dosage: DOSE: UNK
  7. DETROL [Concomitant]
     Dosage: DOSE: UNK
  8. OXYCONTIN [Concomitant]
     Dosage: DOSE: UNK
  9. PERCOCET [Concomitant]
     Dosage: DOSE: UNK
  10. AMBIEN [Concomitant]
     Dosage: DOSE: UNK
  11. XANAX [Concomitant]
     Dosage: DOSE: UNK
  12. AMITRIPTYLINE HCL [Concomitant]
     Dosage: DOSE: UNK
  13. PHENERGAN [Concomitant]
     Dosage: DOSE: UNK
  14. IMODIUM [Concomitant]
     Dosage: DOSE: UNK
  15. ASPIRIN [Concomitant]
     Dosage: DOSE: UNK
  16. NITROGLYCERIN [Concomitant]
     Dosage: DOSE: UNK
  17. AMOXICILLIN [Concomitant]
     Dosage: DOSE: UNK
  18. VITAMINS [Concomitant]
     Dosage: DOSE: UNK
  19. NOVOLOG [Concomitant]
     Dosage: DOSE: UNK

REACTIONS (8)
  - BLOOD POTASSIUM INCREASED [None]
  - BLOOD UREA INCREASED [None]
  - COELIAC DISEASE [None]
  - DIARRHOEA [None]
  - HEPATITIS ACUTE [None]
  - HYPERGLYCAEMIA [None]
  - LIVER FUNCTION TEST ABNORMAL [None]
  - WEIGHT DECREASED [None]
